FAERS Safety Report 4264827-1 (Version None)
Quarter: 2004Q1

REPORT INFORMATION
  Report Type: 
  Country: None (occurrence: None)
  Receive Date: 20040105
  Receipt Date: 20031219
  Transmission Date: 20041129
  Serious: Yes (Hospitalization)
  Sender: FDA-Public Use
  Company Number: 200314866FR

PATIENT
  Age: 81 Year
  Sex: Female

DRUGS (6)
  1. FUROSEMIDE [Suspect]
     Indication: ACUTE PULMONARY OEDEMA
     Dosage: 20 MG BID PO
     Dates: end: 20030724
  2. HYDROCHLOROTHIAZIDE,VALSARTAN(COTAREG) [Concomitant]
  3. ... [Concomitant]
  4. FLUINDIONE (PREVISCAN 20 MG) [Concomitant]
  5. TRIMEBUTINE MALEATE (DEBRIDAT) [Concomitant]
  6. PAROXETINE HCL [Concomitant]

REACTIONS (4)
  - ACUTE PULMONARY OEDEMA [None]
  - CONFUSIONAL STATE [None]
  - HYPOKALAEMIA [None]
  - HYPONATRAEMIA [None]
